FAERS Safety Report 10820262 (Version 1)
Quarter: 2015Q1

REPORT INFORMATION
  Report Type: Spontaneous
  Country: US (occurrence: None)
  Receive Date: 20150213
  Receipt Date: 20150213
  Transmission Date: 20150721
  Serious: Yes (Hospitalization)
  Sender: FDA-Public Use
  Company Number: 2015020028

PATIENT
  Age: 83 Year
  Sex: Female

DRUGS (11)
  1. TRIATEC (RAMIPRIL) [Suspect]
     Active Substance: RAMIPRIL
     Route: 048
  2. VOLTARENE [Suspect]
     Active Substance: DICLOFENAC SODIUM
     Indication: BACK PAIN
     Route: 048
     Dates: end: 20140626
  3. PANTOZOL [Concomitant]
     Active Substance: PANTOPRAZOLE SODIUM
  4. ZYLORIC (ALLOPURINOL) [Concomitant]
     Active Substance: ALLOPURINOL
  5. DAFALGAN (PARACETAMOL) [Concomitant]
  6. TOREM (TORASEMIDE) [Suspect]
     Active Substance: TORSEMIDE
     Route: 048
  7. SYSTEN COMBI TTS (ESTRADIOL) [Concomitant]
  8. ALDACTONE [Suspect]
     Active Substance: SPIRONOLACTONE
     Route: 048
  9. CONCOR (BISOPROLOL FUMARATE) [Concomitant]
  10. SIFROL (PRAMIPEXOLE DIHYDROCHLORIDE) [Concomitant]
  11. MARCOUMAR (PHENPROCOUMON) [Suspect]
     Active Substance: PHENPROCOUMON
     Indication: ATRIAL FIBRILLATION
     Dosage: ACCORDING TO INR
     Route: 048
     Dates: end: 20140627

REACTIONS (7)
  - International normalised ratio increased [None]
  - Haemorrhagic anaemia [None]
  - Gastrointestinal angiodysplasia [None]
  - Upper gastrointestinal haemorrhage [None]
  - Acute kidney injury [None]
  - Blood pressure decreased [None]
  - Drug interaction [None]

NARRATIVE: CASE EVENT DATE: 201406
